FAERS Safety Report 15617543 (Version 1)
Quarter: 2018Q4

REPORT INFORMATION
  Report Type: Spontaneous
  Country: US (occurrence: US)
  Receive Date: 20181114
  Receipt Date: 20181114
  Transmission Date: 20190205
  Serious: Yes (Hospitalization)
  Sender: FDA-Public Use
  Company Number: US-PRINSTON PHARMACEUTICAL INC.-2018PRN00512

PATIENT
  Age: 83 Year
  Sex: Male
  Weight: 72.56 kg

DRUGS (6)
  1. TORSEMIDE. [Suspect]
     Active Substance: TORSEMIDE
     Indication: JOINT SWELLING
     Dosage: 20 MG IN THE AM AND 10 MG IN THE PM
     Dates: start: 201806
  2. FUROSEMIDE. [Suspect]
     Active Substance: FUROSEMIDE
     Indication: JOINT SWELLING
     Dosage: UNK
     Route: 048
  3. TORSEMIDE. [Suspect]
     Active Substance: TORSEMIDE
     Indication: PULMONARY OEDEMA
  4. UNSPECIFIED DRUGS [Concomitant]
     Active Substance: UNSPECIFIED INGREDIENT
  5. FUROSEMIDE. [Suspect]
     Active Substance: FUROSEMIDE
     Indication: PULMONARY OEDEMA
     Dosage: 40 MG IN AM
     Route: 048
     Dates: end: 201806
  6. FUROSEMIDE. [Suspect]
     Active Substance: FUROSEMIDE
     Indication: CARDIAC FAILURE
     Dosage: 20 MG IN AFTERNOON
     Route: 048
     Dates: end: 201806

REACTIONS (4)
  - Pleural effusion [Recovering/Resolving]
  - Cough [Recovering/Resolving]
  - Weight decreased [Unknown]
  - Drug ineffective [Recovering/Resolving]

NARRATIVE: CASE EVENT DATE: 201711
